FAERS Safety Report 7387564-3 (Version None)
Quarter: 2011Q1

REPORT INFORMATION
  Report Type: 
  Country: None (occurrence: None)
  Receive Date: 20110331
  Receipt Date: 20110323
  Transmission Date: 20110831
  Serious: Yes (Death, Hospitalization, Other)
  Sender: FDA-Public Use
  Company Number: US-CEPHALON-2011001376

PATIENT
  Sex: Female

DRUGS (2)
  1. PROVIGIL [Suspect]
     Route: 048
  2. PROVIGIL [Suspect]
     Dates: start: 20020101

REACTIONS (3)
  - DRUG PRESCRIBING ERROR [None]
  - NEPHROPATHY [None]
  - PSYCHOTIC DISORDER [None]
